FAERS Safety Report 15227496 (Version 1)
Quarter: 2018Q3

REPORT INFORMATION
  Report Type: Spontaneous
  Country: HR (occurrence: HR)
  Receive Date: 20180801
  Receipt Date: 20180801
  Transmission Date: 20181010
  Serious: Yes (Other)
  Sender: FDA-Public Use
  Company Number: HR-MYLANLABS-2018M1056001

PATIENT
  Age: 70 Year
  Sex: Female
  Weight: 69 kg

DRUGS (2)
  1. BRUFEN [Suspect]
     Active Substance: IBUPROFEN
     Indication: BACK PAIN
     Dosage: 1200 MG, QD
     Route: 048
     Dates: start: 20171105, end: 20180105
  2. MARTEFARIN [Interacting]
     Active Substance: WARFARIN
     Indication: PRODUCT USED FOR UNKNOWN INDICATION
     Dosage: 3 MG, UNK
     Route: 048

REACTIONS (2)
  - Labelled drug-drug interaction medication error [Not Recovered/Not Resolved]
  - Contusion [Not Recovered/Not Resolved]

NARRATIVE: CASE EVENT DATE: 20171227
